FAERS Safety Report 4712037-3 (Version None)
Quarter: 2005Q2

REPORT INFORMATION
  Report Type: 
  Country: None (occurrence: None)
  Receive Date: 20050629
  Receipt Date: 20050408
  Transmission Date: 20051028
  Serious: No
  Sender: FDA-Public Use
  Company Number: 05P-163-0296891-00

PATIENT
  Age: 57 Year
  Sex: Male
  Weight: 91 kg

DRUGS (10)
  1. HUMIRA [Suspect]
     Indication: RHEUMATOID ARTHRITIS
     Dosage: 40 MG, 1 IN 2 WK, SUBCUTANEOUS
     Route: 058
     Dates: start: 20040301
  2. DIGOXIN [Concomitant]
  3. ATENOLOL [Concomitant]
  4. BUMETANIDE [Concomitant]
  5. MOEXIPRIL HYDROCHLORIDE [Concomitant]
  6. ASPIRIN [Concomitant]
  7. FOLTZ [Concomitant]
  8. CHLOR-CON [Concomitant]
  9. ZETIA [Concomitant]
  10. NYSPAN [Concomitant]

REACTIONS (2)
  - ARTHRALGIA [None]
  - FEELING HOT [None]
